FAERS Safety Report 12117005 (Version 2)
Quarter: 2017Q1

REPORT INFORMATION
  Report Type: Other
  Country: US (occurrence: US)
  Receive Date: 20160225
  Receipt Date: 20170210
  Transmission Date: 20170428
  Serious: No
  Sender: FDA-Public Use
  Company Number: US-ACORDA-ACO_109539_2015

PATIENT
  Sex: Male
  Weight: 87.98 kg

DRUGS (8)
  1. REBIF [Concomitant]
     Active Substance: INTERFERON BETA-1A
     Indication: PRODUCT USED FOR UNKNOWN INDICATION
     Dosage: UNK, 3X/WK
     Route: 065
  2. LYRICA [Concomitant]
     Active Substance: PREGABALIN
     Indication: PRODUCT USED FOR UNKNOWN INDICATION
     Dosage: UNK
     Route: 065
  3. INSULIN [Concomitant]
     Active Substance: INSULIN NOS
     Indication: PRODUCT USED FOR UNKNOWN INDICATION
     Dosage: UNK
     Route: 065
  4. AMPYRA [Suspect]
     Active Substance: DALFAMPRIDINE
     Indication: GAIT DISTURBANCE
     Dosage: 10 MG, BID
     Route: 048
     Dates: start: 2011
  5. ^BLOOD PRESSURE PILL^ [Concomitant]
     Indication: BLOOD PRESSURE MEASUREMENT
  6. AMPYRA [Suspect]
     Active Substance: DALFAMPRIDINE
     Dosage: 10 MG, BID
     Route: 048
     Dates: start: 201502
  7. CITALOPRAM [Concomitant]
     Active Substance: CITALOPRAM HYDROBROMIDE
     Indication: PRODUCT USED FOR UNKNOWN INDICATION
     Dosage: UNK
     Route: 065
  8. ^CHOLESTEROL PILL^ [Concomitant]
     Indication: BLOOD CHOLESTEROL

REACTIONS (11)
  - Gait disturbance [Not Recovered/Not Resolved]
  - Condition aggravated [Not Recovered/Not Resolved]
  - Ataxia [Unknown]
  - Therapy cessation [Not Recovered/Not Resolved]
  - Muscular weakness [Not Recovered/Not Resolved]
  - Dysstasia [Not Recovered/Not Resolved]
  - Coordination abnormal [Not Recovered/Not Resolved]
  - Balance disorder [Not Recovered/Not Resolved]
  - Drug ineffective [Recovered/Resolved]
  - Gait disturbance [Recovered/Resolved]
  - Therapy cessation [Recovered/Resolved]

NARRATIVE: CASE EVENT DATE: 2011
